FAERS Safety Report 5022861-8 (Version None)
Quarter: 2006Q2

REPORT INFORMATION
  Report Type: 
  Country: None (occurrence: None)
  Receive Date: 20060426
  Receipt Date: 20060321
  Transmission Date: 20061013
  Serious: Yes (Other)
  Sender: FDA-Public Use
  Company Number: 2006041679

PATIENT
  Age: 57 Year
  Sex: Female
  Weight: 103.8737 kg

DRUGS (10)
  1. LYRICA [Suspect]
     Indication: DIABETIC NEUROPATHY
     Dosage: 100 MG (100 MG, 1 IN 1 D), ORAL
     Route: 048
     Dates: start: 20060301
  2. LANTUS [Concomitant]
  3. PROTONIX [Concomitant]
  4. POTASSIUM (POTASSIUM) [Concomitant]
  5. FUROSEMIDE [Concomitant]
  6. VITAMIN B12 [Concomitant]
  7. FOLIC ACID [Concomitant]
  8. PAXIL [Concomitant]
  9. AMITRIPTYLINE HCL [Concomitant]
  10. SPIRONOLACTONE [Concomitant]

REACTIONS (1)
  - OEDEMA PERIPHERAL [None]
